FAERS Safety Report 24074974 (Version 1)
Quarter: 2024Q3

REPORT INFORMATION
  Report Type: Spontaneous
  Country: JP (occurrence: JP)
  Receive Date: 20240710
  Receipt Date: 20240710
  Transmission Date: 20241016
  Serious: No
  Sender: PIERRE FABRE MEDICAMENT
  Company Number: JP-maruho-EVC202300194PFM

PATIENT
  Sex: Female
  Weight: 4.98 kg

DRUGS (5)
  1. PROPRANOLOL HYDROCHLORIDE [Suspect]
     Active Substance: PROPRANOLOL HYDROCHLORIDE
     Indication: Infantile haemangioma
     Dosage: 1 MG/KG, SINGLE DOSE 0.6ML X 2 TIMES (1.2ML)
     Route: 048
     Dates: start: 20170131, end: 20170201
  2. PROPRANOLOL HYDROCHLORIDE [Suspect]
     Active Substance: PROPRANOLOL HYDROCHLORIDE
     Dosage: 2 MG/KG, SINGLE DOSE 1.1ML X 2 TIMES (2.2ML)
     Route: 048
     Dates: start: 20170202, end: 20170203
  3. PROPRANOLOL HYDROCHLORIDE [Suspect]
     Active Substance: PROPRANOLOL HYDROCHLORIDE
     Dosage: 3 MG/KG, SINGLE DOSE 1.7ML X 1 TIME, SECOND DOSE DISCONTINUED
     Route: 048
     Dates: start: 20170204, end: 20170204
  4. PROPRANOLOL HYDROCHLORIDE [Suspect]
     Active Substance: PROPRANOLOL HYDROCHLORIDE
     Dosage: 2 MG/KG, SINGLE DOSE 1.1ML X 2 TIMES (2.2ML)
     Route: 048
     Dates: start: 20170220, end: 20170220
  5. PROPRANOLOL HYDROCHLORIDE [Suspect]
     Active Substance: PROPRANOLOL HYDROCHLORIDE
     Dosage: 3 MG/KG
     Route: 048
     Dates: start: 20170221

REACTIONS (8)
  - Gastroenteritis [Recovered/Resolved]
  - Pyrexia [Recovered/Resolved]
  - Ulcer [Recovered/Resolved]
  - White blood cell count increased [Recovered/Resolved]
  - Infection [Recovered/Resolved]
  - Diarrhoea [Recovered/Resolved]
  - Diarrhoea [Recovered/Resolved]
  - Hypoglycaemia [Recovered/Resolved]

NARRATIVE: CASE EVENT DATE: 20170203
